FAERS Safety Report 5337030-1 (Version None)
Quarter: 2007Q2

REPORT INFORMATION
  Report Type: 
  Country: None (occurrence: None)
  Receive Date: 20070529
  Receipt Date: 20070524
  Transmission Date: 20071010
  Serious: Yes (Hospitalization)
  Sender: FDA-Public Use
  Company Number: JP-ALLERGAN-0705551US

PATIENT
  Sex: Female

DRUGS (11)
  1. ALESION TABLET [Suspect]
     Indication: ECZEMA
     Dosage: 20 MG, QD
     Dates: start: 20070405, end: 20070517
  2. AMLODIN [Concomitant]
     Indication: HYPERTENSION
     Dosage: 2.5 MG, QD
     Route: 048
     Dates: start: 20060315
  3. PREDNISOLONE [Concomitant]
     Indication: SYSTEMIC LUPUS ERYTHEMATOSUS
     Dosage: 7.5 MG, QD
     Route: 048
     Dates: start: 20060315
  4. ASPIRIN [Concomitant]
     Indication: ARTERIOSCLEROSIS OBLITERANS
     Dosage: 100 MG, QD
     Route: 048
     Dates: start: 20060315
  5. TAKEPRON [Concomitant]
     Indication: GASTRIC ULCER
     Dosage: 15 MG, QD
     Route: 048
     Dates: start: 20060315
  6. NITOROL [Concomitant]
     Dosage: 40 MG, QD
     Route: 048
  7. TICLOPIDINE HCL [Concomitant]
     Indication: MYOCARDIAL ISCHAEMIA
     Dosage: 200 MG, QD
     Route: 048
     Dates: start: 20060315
  8. PROCYLIN [Concomitant]
     Indication: ARTERIOSCLEROSIS OBLITERANS
     Dosage: 120 UG, QD
     Route: 048
     Dates: start: 20060315
  9. GLAKAY [Concomitant]
     Indication: OSTEOPOROSIS
     Dosage: 45 MG, QD
     Route: 048
     Dates: start: 20060315
  10. SIGMART [Concomitant]
     Indication: MYOCARDIAL ISCHAEMIA
     Dosage: 15 MG, QD
     Route: 048
     Dates: start: 20060315
  11. LOXONIN [Concomitant]
     Indication: SYSTEMIC LUPUS ERYTHEMATOSUS
     Dosage: 180 MG, QD
     Route: 048
     Dates: start: 20060315

REACTIONS (1)
  - THROMBOCYTOPENIC PURPURA [None]
